FAERS Safety Report 6695409-X (Version None)
Quarter: 2010Q2

REPORT INFORMATION
  Report Type: 
  Country: None (occurrence: None)
  Receive Date: 20100422
  Receipt Date: 20100422
  Transmission Date: 20101027
  Serious: Yes (Life-Threatening, Disabling)
  Sender: FDA-Public Use
  Company Number: None

PATIENT
  Sex: Female
  Weight: 68.0396 kg

DRUGS (2)
  1. (GE) THALLIUM RADIOACTIVE [Suspect]
     Indication: CARDIAC STRESS TEST
     Dosage: INJECTION
     Dates: start: 20050802
  2. (ASTELLAS) TECHNETIUM RADIOACTIVE [Suspect]
     Indication: CARDIAC STRESS TEST
     Dosage: INJECTION
     Dates: start: 20050802

REACTIONS (6)
  - IMPAIRED HEALING [None]
  - NASAL ULCER [None]
  - SCAB [None]
  - SPLEEN DISORDER [None]
  - ULCER HAEMORRHAGE [None]
  - URINARY INCONTINENCE [None]
